FAERS Safety Report 15488243 (Version 1)
Quarter: 2018Q4

REPORT INFORMATION
  Report Type: Spontaneous
  Country: US (occurrence: US)
  Receive Date: 20181011
  Receipt Date: 20181011
  Transmission Date: 20190205
  Serious: No
  Sender: FDA-Public Use
  Company Number: US-JNJFOC-20180916751

PATIENT
  Age: 23 Year
  Sex: Female
  Weight: 86.18 kg

DRUGS (1)
  1. INFANTS TYLENOL [Suspect]
     Active Substance: ACETAMINOPHEN
     Indication: PRODUCT USED FOR UNKNOWN INDICATION
     Dosage: 3.75 ML ONCE
     Route: 048
     Dates: start: 20180911, end: 20180911

REACTIONS (4)
  - Oropharyngeal pain [Not Recovered/Not Resolved]
  - Product administered to patient of inappropriate age [Unknown]
  - Liquid product physical issue [Unknown]
  - Product use in unapproved indication [Unknown]

NARRATIVE: CASE EVENT DATE: 20180911
